FAERS Safety Report 16253341 (Version 1)
Quarter: 2019Q2

REPORT INFORMATION
  Report Type: Report from Study
  Country: None (occurrence: IE)
  Receive Date: 20190429
  Receipt Date: 20190429
  Transmission Date: 20190711
  Serious: Yes (Hospitalization)
  Sender: FDA-Public Use
  Company Number: IE-ABBVIE-18K-229-2535631-00

PATIENT
  Age: 66 Year
  Sex: Female

DRUGS (2)
  1. HUMIRA [Suspect]
     Active Substance: ADALIMUMAB
     Indication: RHEUMATOID ARTHRITIS
     Route: 058
     Dates: start: 20180326, end: 2018
  2. HUMIRA [Suspect]
     Active Substance: ADALIMUMAB
     Indication: COLITIS ULCERATIVE

REACTIONS (8)
  - Cardiomegaly [Unknown]
  - Fatigue [Unknown]
  - Lung disorder [Unknown]
  - Cardiac dysfunction [Unknown]
  - Myalgia [Unknown]
  - Arthralgia [Unknown]
  - Chest discomfort [Unknown]
  - Lower respiratory tract infection [Unknown]

NARRATIVE: CASE EVENT DATE: 2018
